FAERS Safety Report 5098456-7 (Version None)
Quarter: 2006Q3

REPORT INFORMATION
  Report Type: 
  Country: None (occurrence: None)
  Receive Date: 20060906
  Receipt Date: 20060123
  Transmission Date: 20061208
  Serious: No
  Sender: FDA-Public Use
  Company Number: US-GLAXOSMITHKLINE-A0590479A

PATIENT
  Age: 67 Year
  Sex: Female

DRUGS (9)
  1. REQUIP [Suspect]
     Indication: RESTLESS LEGS SYNDROME
     Dosage: 2MG PER DAY
     Route: 048
     Dates: start: 20051130
  2. CALTRATE [Concomitant]
     Dosage: 600MG TWICE PER DAY
     Route: 048
     Dates: start: 19980702
  3. EVISTA [Concomitant]
     Dosage: 60MG PER DAY
     Route: 048
     Dates: start: 19981002
  4. MIACALCIN [Concomitant]
     Dosage: 200IU PER DAY
     Dates: start: 20010502
  5. LOTENSIN HCT [Concomitant]
     Dosage: 1TAB PER DAY
     Route: 048
     Dates: start: 20011204
  6. DIOVAN [Concomitant]
     Dosage: 160MG PER DAY
     Route: 048
     Dates: start: 20020819
  7. PLAVIX [Concomitant]
     Dosage: 75MG PER DAY
     Route: 048
     Dates: start: 20020819
  8. LIPITOR [Concomitant]
     Dosage: 40MG PER DAY
     Route: 048
     Dates: start: 20050901
  9. METFORMIN HCL [Concomitant]
     Dosage: 500MG PER DAY
     Route: 048
     Dates: start: 20051130

REACTIONS (5)
  - DYSPEPSIA [None]
  - FLATULENCE [None]
  - HEADACHE [None]
  - MENTAL DISORDER [None]
  - VISUAL DISTURBANCE [None]
